FAERS Safety Report 8153028-2 (Version None)
Quarter: 2012Q1

REPORT INFORMATION
  Report Type: 
  Country: None (occurrence: None)
  Receive Date: 20120221
  Receipt Date: 20120208
  Transmission Date: 20120608
  Serious: Yes (Hospitalization)
  Sender: FDA-Public Use
  Company Number: US-UCBSA-045060

PATIENT
  Age: 53 Year
  Sex: Female
  Weight: 77 kg

DRUGS (8)
  1. BUTRANS [Interacting]
     Indication: PAIN
     Dosage: PATCH
     Route: 061
     Dates: start: 20110729
  2. PENTASSA [Concomitant]
     Indication: COLITIS
     Dosage: NUMBER OF TAKES :2 TOTAL DAILY DOSE :4
     Route: 048
     Dates: start: 20110101
  3. PREDNISONE [Concomitant]
     Indication: CROHN'S DISEASE
     Route: 048
     Dates: start: 20110101
  4. LISINOPRIL [Concomitant]
     Indication: HYPERTENSION
     Route: 048
     Dates: start: 20110101
  5. PENTASSA [Concomitant]
     Indication: CROHN'S DISEASE
     Dosage: NUMBER OF TAKES :2 TOTAL DAILY DOSE :4
     Route: 048
     Dates: start: 20110101
  6. SIMVASTATIN [Concomitant]
     Indication: BLOOD CHOLESTEROL INCREASED
     Route: 048
     Dates: start: 20110101
  7. KEPPRA [Suspect]
  8. PREDNISONE [Concomitant]
     Indication: COLITIS
     Route: 048
     Dates: start: 20110101

REACTIONS (4)
  - NAUSEA [None]
  - HYPOTENSION [None]
  - DRUG INTERACTION [None]
  - VOMITING [None]
